FAERS Safety Report 18844932 (Version 1)
Quarter: 2021Q1

REPORT INFORMATION
  Report Type: Spontaneous
  Country: DE (occurrence: DE)
  Receive Date: 20210204
  Receipt Date: 20210204
  Transmission Date: 20210419
  Serious: Yes (Other)
  Sender: FDA-Public Use
  Company Number: DE-BAYER-2021-051712

PATIENT
  Age: 40 Year
  Sex: Female

DRUGS (1)
  1. INTERFERON BETA ? 1B [Suspect]
     Active Substance: INTERFERON BETA-1B
     Indication: MULTIPLE SCLEROSIS
     Dosage: UNK
     Route: 058

REACTIONS (1)
  - Oesophageal candidiasis [Not Recovered/Not Resolved]

NARRATIVE: CASE EVENT DATE: 2020
